FAERS Safety Report 9422962 (Version 1)
Quarter: 2013Q3

REPORT INFORMATION
  Report Type: Spontaneous
  Country: US (occurrence: US)
  Receive Date: 20130726
  Receipt Date: 20130726
  Transmission Date: 20140515
  Serious: Yes (Hospitalization)
  Sender: FDA-Public Use
  Company Number: US-ELI_LILLY_AND_COMPANY-US201307006554

PATIENT
  Age: 76 Year
  Sex: Male

DRUGS (9)
  1. ALIMTA [Suspect]
     Indication: NON-SMALL CELL LUNG CANCER
     Dosage: UNK
     Dates: start: 20120828, end: 20130605
  2. CARBOPLATIN [Suspect]
     Indication: NON-SMALL CELL LUNG CANCER
     Dosage: UNK
     Dates: start: 20130130, end: 20130605
  3. ASPIRIN [Concomitant]
     Dosage: 81 MG, UNK
  4. ZOCOR [Concomitant]
  5. GLUCOSAMINE [Concomitant]
  6. FOLIC ACID [Concomitant]
  7. PREDNISONE [Concomitant]
  8. XALATAN [Concomitant]
     Route: 047
  9. FLUDROCORTISONE [Concomitant]

REACTIONS (5)
  - Transient ischaemic attack [Unknown]
  - Dehydration [Unknown]
  - Oxygen saturation decreased [Unknown]
  - Blood pressure decreased [Unknown]
  - Off label use [Recovered/Resolved]
